FAERS Safety Report 8003310-4 (Version None)
Quarter: 2011Q4

REPORT INFORMATION
  Report Type: 
  Country: None (occurrence: None)
  Receive Date: 20111222
  Receipt Date: 20111219
  Transmission Date: 20120403
  Serious: Yes (Death)
  Sender: FDA-Public Use
  Company Number: PHHY2011NL110522

PATIENT
  Sex: Male

DRUGS (3)
  1. ZOMETA [Suspect]
     Indication: PROSTATE CANCER METASTATIC
     Dosage: 4 MG/5ML, 1XPER 56 DAYS
     Route: 042
     Dates: start: 20100730
  2. ZOMETA [Suspect]
     Dosage: 4 MG/5ML, 1XPER 56 DAYS
     Route: 042
     Dates: start: 20110908
  3. ZOMETA [Suspect]
     Dosage: 4 MG/5ML, 1XPER 56 DAYS
     Route: 042
     Dates: start: 20111103

REACTIONS (1)
  - DEATH [None]
